FAERS Safety Report 10023756 (Version 1)
Quarter: 2014Q1

REPORT INFORMATION
  Report Type: Spontaneous
  Country: CA (occurrence: None)
  Receive Date: 20140113
  Receipt Date: 20140113
  Transmission Date: 20141002
  Serious: Yes (Other)
  Sender: FDA-Public Use
  Company Number: AMAG201300235

PATIENT
  Sex: Female

DRUGS (1)
  1. FERAHEME [Suspect]
     Indication: NEPHROGENIC ANAEMIA
     Dosage: 390 MG SINGLE
     Dates: start: 20131122, end: 20131122

REACTIONS (6)
  - Choking [None]
  - Nausea [None]
  - Abdominal pain [None]
  - Vomiting [None]
  - Retching [None]
  - Retching [None]
